FAERS Safety Report 7490690-1 (Version None)
Quarter: 2011Q2

REPORT INFORMATION
  Report Type: 
  Country: None (occurrence: None)
  Receive Date: 20110519
  Receipt Date: 20110428
  Transmission Date: 20111010
  Serious: No
  Sender: FDA-Public Use
  Company Number: US-B.I. PHARMACEUTICALS,INC./RIDGEFIELD-2011-BP-02300BP

PATIENT
  Sex: Female

DRUGS (8)
  1. AMLODIPINE [Concomitant]
     Dosage: 5 MG
  2. PRAVASTATIN [Concomitant]
     Indication: BLOOD CHOLESTEROL INCREASED
     Dosage: 40 MG
  3. GLYB/METFORMIN [Concomitant]
     Indication: DIABETES MELLITUS
  4. DIGOXIN [Concomitant]
     Dosage: 0.25 MG
  5. LABETALOL [Concomitant]
     Dosage: 200 MG
  6. BENICAR [Concomitant]
     Indication: HYPERTENSION
     Dosage: 40 MG
  7. TRIAMTERENE AND HYDROCHLOROTHIAZIDE [Concomitant]
     Indication: DIURETIC THERAPY
  8. PRADAXA [Suspect]
     Indication: ATRIAL FIBRILLATION
     Dosage: 300 MG
     Route: 048
     Dates: start: 20110121

REACTIONS (8)
  - NASAL DISCOMFORT [None]
  - HYPERSENSITIVITY [None]
  - TREMOR [None]
  - LIP SWELLING [None]
  - ERYTHEMA [None]
  - BLOOD PRESSURE INCREASED [None]
  - FEELING HOT [None]
  - CARDIAC DISORDER [None]
